FAERS Safety Report 22378904 (Version 1)
Quarter: 2023Q2

REPORT INFORMATION
  Report Type: Spontaneous
  Country: US (occurrence: US)
  Receive Date: 20230529
  Receipt Date: 20230529
  Transmission Date: 20230722
  Serious: Yes (Hospitalization, Other)
  Sender: FDA-Public Use
  Company Number: US-AUROBINDO-AUR-APL-2023-038531

PATIENT
  Age: 16 Year
  Sex: Female

DRUGS (5)
  1. NAPROXEN [Suspect]
     Active Substance: NAPROXEN
     Indication: Product used for unknown indication
     Dosage: 41.8 GRAM (656 MG/KG; 63.7KG)
  2. NAPROXEN [Suspect]
     Active Substance: NAPROXEN
     Dosage: 244.7 MILLIGRAM PER MILLILETER
     Route: 065
  3. NAPROXEN [Suspect]
     Active Substance: NAPROXEN
     Dosage: 26.7 MILLIGRAM PER MILLILETER
     Route: 065
  4. IBUPROFEN [Suspect]
     Active Substance: IBUPROFEN
     Indication: Product used for unknown indication
     Dosage: 2 GRAM
     Route: 065
  5. EPINEPHRINE [Concomitant]
     Active Substance: EPINEPHRINE
     Indication: Product used for unknown indication
     Dosage: UNK
     Route: 065

REACTIONS (7)
  - Agitation [Unknown]
  - Disorientation [Unknown]
  - Lethargy [Unknown]
  - Overdose [Unknown]
  - Hypotension [Unknown]
  - Lactic acidosis [Unknown]
  - Product dose omission issue [Unknown]
